FAERS Safety Report 11374576 (Version 1)
Quarter: 2015Q3

REPORT INFORMATION
  Report Type: Spontaneous
  Country: GB (occurrence: GB)
  Receive Date: 20150813
  Receipt Date: 20150813
  Transmission Date: 20151125
  Serious: Yes (Other)
  Sender: FDA-Public Use
  Company Number: GB-MERCK-1508GBR005228

PATIENT
  Age: 62 Year
  Sex: Male
  Weight: 112 kg

DRUGS (6)
  1. DAPTOMYCIN. [Suspect]
     Active Substance: DAPTOMYCIN
     Indication: OSTEOMYELITIS
     Dosage: 500 MG, QD
     Route: 042
     Dates: start: 20150714, end: 20150723
  2. LINAGLIPTIN [Concomitant]
     Active Substance: LINAGLIPTIN
  3. NATEGLINIDE. [Concomitant]
     Active Substance: NATEGLINIDE
  4. DAPTOMYCIN. [Suspect]
     Active Substance: DAPTOMYCIN
     Indication: ENTEROBACTER INFECTION
  5. SULFAMETHOXAZOLE (+) TRIMETHOPRIM [Concomitant]
     Active Substance: SULFAMETHOXAZOLE\TRIMETHOPRIM
  6. FLUCONAZOLE. [Concomitant]
     Active Substance: FLUCONAZOLE

REACTIONS (3)
  - Renal impairment [Unknown]
  - Condition aggravated [Unknown]
  - Rhabdomyolysis [Unknown]

NARRATIVE: CASE EVENT DATE: 201507
